FAERS Safety Report 5626233-4 (Version None)
Quarter: 2008Q1

REPORT INFORMATION
  Report Type: 
  Country: None (occurrence: None)
  Receive Date: 20080214
  Receipt Date: 20080206
  Transmission Date: 20080703
  Serious: Yes (Hospitalization)
  Sender: FDA-Public Use
  Company Number: B0507017A

PATIENT
  Age: 66 Year
  Sex: Female
  Weight: 69.6 kg

DRUGS (2)
  1. LAPATINIB [Suspect]
     Route: 048
  2. CAPECITABINE [Suspect]
     Route: 048

REACTIONS (2)
  - DIARRHOEA [None]
  - PYREXIA [None]
